FAERS Safety Report 12903866 (Version 1)
Quarter: 2016Q4

REPORT INFORMATION
  Report Type: Report from Study
  Country: US (occurrence: US)
  Receive Date: 20161102
  Receipt Date: 20161102
  Transmission Date: 20170207
  Serious: Yes (Other)
  Sender: FDA-Public Use
  Company Number: US-BRISTOL-MYERS SQUIBB COMPANY-BMS-2016-088503

PATIENT
  Sex: Female
  Weight: 54.43 kg

DRUGS (1)
  1. ABATACEPT [Suspect]
     Active Substance: ABATACEPT
     Indication: RHEUMATOID ARTHRITIS
     Dosage: UNK
     Route: 058
     Dates: start: 201509

REACTIONS (3)
  - Non-Hodgkin^s lymphoma recurrent [Unknown]
  - Pulmonary embolism [Unknown]
  - Bone marrow transplant [Unknown]
